FAERS Safety Report 15028208 (Version 2)
Quarter: 2018Q3

REPORT INFORMATION
  Report Type: Spontaneous
  Country: US (occurrence: US)
  Receive Date: 20180619
  Receipt Date: 20180917
  Transmission Date: 20181010
  Serious: No
  Sender: FDA-Public Use
  Company Number: US-PFIZER INC-2018246810

PATIENT
  Age: 79 Year
  Sex: Female

DRUGS (22)
  1. XELJANZ XR [Suspect]
     Active Substance: TOFACITINIB CITRATE
     Dosage: 11 MG, UNK
     Dates: start: 2018, end: 20180416
  2. HUMALOG [Concomitant]
     Active Substance: INSULIN LISPRO
     Dosage: UNK, 3X/DAY (8?10 UNITS (BEFORE BREAKFAST), 8 UNITS (BEFORE LUNCH), 8? 10 UNITS (BEFORE DINNER))
  3. LANTUS [Concomitant]
     Active Substance: INSULIN GLARGINE
     Dosage: 24 IU, 1X/DAY [11:30PM: (BEFORE BED)]
  4. LISINOPRIL. [Concomitant]
     Active Substance: LISINOPRIL
     Dosage: 40 MG, 1X/DAY (BEFORE BREAKFAST, WITH ORANGE JUICE)
  5. PRESERVISION AREDS [Concomitant]
     Active Substance: MINERALS\VITAMINS
     Dosage: UNK, 2X/DAY [AFTER BREAKFAST; AFTER DINNER]
  6. AMLODIPINE [AMLODIPINE BESILATE] [Concomitant]
     Active Substance: AMLODIPINE BESYLATE
     Dosage: 10 MG, 1X/DAY (AFTER DINNER)
  7. METHOTREXATE [METHOTREXATE SODIUM] [Concomitant]
     Dosage: 2.5 MG, WEEKLY (FRIDAY ONLY)
  8. SIMVASTATIN. [Concomitant]
     Active Substance: SIMVASTATIN
     Dosage: 20 MG, 1X/DAY(11:30PM: (BEFORE BED))
  9. ALLOPURINOL. [Concomitant]
     Active Substance: ALLOPURINOL
     Dosage: 100 MG, 1X/DAY (AFTER BREAKFAST)
  10. PROBIOTIC [BIFIDOBACTERIUM BIFIDUM;BIFIDOBACTERIUM LACTIS;BIFIDOBACTER [Concomitant]
     Dosage: UNK, 1X/DAY (BEFORE BREAKFAST, WITH ORANGE JUICE) 10 BILLION ACTIVE CULTURES
  11. CALCIUM + VITAMIN D [CALCIUM CARBONATE;COLECALCIFEROL] [Concomitant]
     Dosage: 500 MG, 2X/DAY(AFTER BREAKFAST)
  12. TYLENOL [Concomitant]
     Active Substance: ACETAMINOPHEN
     Indication: ARTHRITIS
     Dosage: UNK, 2X/DAY (AFTER BREAKFAST, 9:00PM)
  13. TRIPLE ACTION [Concomitant]
     Dosage: UNK, 1X/DAY
  14. XELJANZ XR [Suspect]
     Active Substance: TOFACITINIB CITRATE
     Indication: RHEUMATOID ARTHRITIS
     Dosage: 11 MG, 1X/DAY
     Dates: start: 201711, end: 201802
  15. ASPRIN [Concomitant]
     Active Substance: ASPIRIN
     Dosage: 81 MG, 1X/DAY (BEFORE BREAKFAST, WITH ORANGE JUICE)
  16. KRILL OIL [FISH OIL] [Concomitant]
     Dosage: 500 MG, 1X/DAY (AFTER DINNER)
  17. FUROSEMIDE. [Concomitant]
     Active Substance: FUROSEMIDE
     Dosage: 20 MG, 1X/DAY (BEFORE BREAKFAST, WITH ORANGE JUICE
  18. LORAZEPAM. [Concomitant]
     Active Substance: LORAZEPAM
     Dosage: 0.5 MG, 2X/DAY [BEFORE BREAKFAST, WITH ORANGE JUICE, 11:30PM: (BEFORE BED)]
  19. SINGULAIR [Concomitant]
     Active Substance: MONTELUKAST SODIUM
     Dosage: UNK, 1X/DAY[11:30PM: (BEFORE BED)]
  20. METANX [Concomitant]
     Active Substance: LEVOMEFOLATE CALCIUM\METHYLCOBALAMIN\PYRIDOXAL PHOSPHATE ANHYDROUS
     Dosage: UNK, 1X/DAY 11:30PM: (BEFORE BED)]
  21. FOLIC ACID. [Concomitant]
     Active Substance: FOLIC ACID
     Dosage: 1 MG, 1X/DAY (BEFORE BREAKFAST, WITH ORANGE JUICE
  22. METOPROLOL TARTRATE. [Concomitant]
     Active Substance: METOPROLOL TARTRATE
     Dosage: 50 MG, 2X/DAY(AFTER BREAKFAST, AFTER DINNER)

REACTIONS (2)
  - White blood cell count decreased [Recovered/Resolved]
  - Blood count abnormal [Recovered/Resolved]

NARRATIVE: CASE EVENT DATE: 201711
